FAERS Safety Report 8287343-9 (Version None)
Quarter: 2012Q2

REPORT INFORMATION
  Report Type: 
  Country: None (occurrence: None)
  Receive Date: 20120416
  Receipt Date: 20120409
  Transmission Date: 20120825
  Serious: No
  Sender: FDA-Public Use
  Company Number: US-B.I. PHARMACEUTICALS,INC./RIDGEFIELD-2012-BP-06892BP

PATIENT

DRUGS (5)
  1. METFORMIN HCL [Concomitant]
  2. VICTOZA [Concomitant]
  3. TRADJENTA [Suspect]
  4. VICTOZA [Concomitant]
  5. JANUVIA [Concomitant]

REACTIONS (4)
  - HEADACHE [None]
  - BLOOD GLUCOSE INCREASED [None]
  - MYALGIA [None]
  - ARTHRALGIA [None]
